FAERS Safety Report 16777787 (Version 2)
Quarter: 2019Q3

REPORT INFORMATION
  Report Type: Spontaneous
  Country: GB (occurrence: GB)
  Receive Date: 20190905
  Receipt Date: 20190911
  Transmission Date: 20191005
  Serious: Yes (Hospitalization, Other)
  Sender: FDA-Public Use
  Company Number: GB-GILEAD-2019-0426679

PATIENT
  Age: 55 Year

DRUGS (31)
  1. MORPHINE SULFATE. [Concomitant]
     Active Substance: MORPHINE SULFATE
     Dosage: 10 MG
  2. MOMETASONE [Concomitant]
     Active Substance: MOMETASONE
     Dosage: (TWO SPRAYS TO BE USED IN EACH NOSTRIL TWICE A DAY, THEN REDUCE WHEN SYMPTOMS UNDER CONTROL
  3. CARMELLOSE SODIUM [Concomitant]
     Active Substance: CARBOXYMETHYLCELLULOSE SODIUM
     Dosage: .4 ML
  4. METFORMIN [Concomitant]
     Active Substance: METFORMIN HYDROCHLORIDE
     Dosage: 2250 MG
  5. DIAZEPAM. [Concomitant]
     Active Substance: DIAZEPAM
  6. FENOFIBRATE. [Concomitant]
     Active Substance: FENOFIBRATE
  7. SITAGLIPTIN [Concomitant]
     Active Substance: SITAGLIPTIN
  8. MOMETASONE [Concomitant]
     Active Substance: MOMETASONE
     Dosage: 400 UG
  9. ACETYLSALICYLIC ACID [Concomitant]
     Active Substance: ASPIRIN
     Dosage: 75 MG
  10. MORPHINE SULFATE. [Concomitant]
     Active Substance: MORPHINE SULFATE
     Dosage: 10MG/5ML AT DOSE OF 2.5-5 ML TO BE TAKEN EVERY 4-6 HOURS AS NECESSARY
     Route: 048
  11. FENOFIBRATE. [Concomitant]
     Active Substance: FENOFIBRATE
     Dosage: 200 MG
  12. BISOPROLOL [Concomitant]
     Active Substance: BISOPROLOL
     Dosage: 2.5 MG
  13. AMLODIPINE [Concomitant]
     Active Substance: AMLODIPINE BESYLATE
     Dosage: 5 MG
  14. LANSOPRAZOLE. [Concomitant]
     Active Substance: LANSOPRAZOLE
     Dosage: 30 MG
  15. ATORVASTATIN [Concomitant]
     Active Substance: ATORVASTATIN
     Dosage: EACH EVENING
  16. LOSARTAN. [Concomitant]
     Active Substance: LOSARTAN
  17. LOSARTAN. [Concomitant]
     Active Substance: LOSARTAN
     Dosage: 100 MG
  18. CARMELLOSE SODIUM [Concomitant]
     Active Substance: CARBOXYMETHYLCELLULOSE SODIUM
     Dosage: FOUR TIMES DAILY AS NECESSARY
  19. DIAZEPAM. [Concomitant]
     Active Substance: DIAZEPAM
  20. SITAGLIPTIN [Concomitant]
     Active Substance: SITAGLIPTIN
     Dosage: 100 MG
  21. ISOSORBIDE MONONITRATE. [Concomitant]
     Active Substance: ISOSORBIDE MONONITRATE
     Dosage: EACH MORNING
  22. ATORVASTATIN [Concomitant]
     Active Substance: ATORVASTATIN
     Dosage: 80 MG
  23. METFORMIN [Concomitant]
     Active Substance: METFORMIN HYDROCHLORIDE
  24. BISOPROLOL [Concomitant]
     Active Substance: BISOPROLOL
  25. LANSOPRAZOLE. [Concomitant]
     Active Substance: LANSOPRAZOLE
     Dosage: EACH MORNING
  26. NAPROXEN. [Concomitant]
     Active Substance: NAPROXEN
  27. NAPROXEN. [Concomitant]
     Active Substance: NAPROXEN
     Dosage: 1000 MG
  28. AMLODIPINE [Concomitant]
     Active Substance: AMLODIPINE BESYLATE
  29. ACETYLSALICYLIC ACID [Concomitant]
     Active Substance: ASPIRIN
  30. RANEXA [Suspect]
     Active Substance: RANOLAZINE
     Indication: CHEST PAIN
     Dosage: 750 MG, QD
     Route: 048
     Dates: start: 20190808, end: 20190809
  31. ISOSORBIDE MONONITRATE. [Concomitant]
     Active Substance: ISOSORBIDE MONONITRATE
     Dosage: 30 MG

REACTIONS (9)
  - Ocular hyperaemia [Unknown]
  - Heart rate increased [Unknown]
  - Vomiting [Unknown]
  - Dizziness [Unknown]
  - Headache [Unknown]
  - Chest pain [Not Recovered/Not Resolved]
  - Intraocular pressure increased [Unknown]
  - Fatigue [Unknown]
  - Blindness unilateral [Recovering/Resolving]

NARRATIVE: CASE EVENT DATE: 20190808
